FAERS Safety Report 6139896-4 (Version None)
Quarter: 2009Q2

REPORT INFORMATION
  Report Type: 
  Country: None (occurrence: None)
  Receive Date: 20090401
  Receipt Date: 20090319
  Transmission Date: 20091009
  Serious: Yes (Hospitalization, Other)
  Sender: FDA-Public Use
  Company Number: GB-TEVA-189234ISR

PATIENT
  Age: 9 Year
  Sex: Male

DRUGS (11)
  1. BACTRIM [Suspect]
  2. PREDNISOLONE [Suspect]
     Indication: PROPHYLAXIS AGAINST TRANSPLANT REJECTION
  3. ABACAVIR [Suspect]
  4. DIDANOSINE [Suspect]
  5. EFAVIRENZ [Suspect]
  6. LAMIVUDINE [Suspect]
  7. MYCOPHENOLIC ACID [Suspect]
     Indication: PROPHYLAXIS AGAINST TRANSPLANT REJECTION
  8. NELFINAVIR [Suspect]
  9. SIROLIMUS [Suspect]
     Indication: PROPHYLAXIS AGAINST TRANSPLANT REJECTION
  10. ZIDOVUDINE [Suspect]
  11. RALTEGRAVIR [Suspect]
     Indication: PROPHYLAXIS AGAINST TRANSPLANT REJECTION

REACTIONS (14)
  - ACUTE HEPATIC FAILURE [None]
  - CACHEXIA [None]
  - DRUG TOXICITY [None]
  - GRAFT DYSFUNCTION [None]
  - HEPATIC ENCEPHALOPATHY [None]
  - HEPATIC FUNCTION ABNORMAL [None]
  - HYPERLIPIDAEMIA [None]
  - HYPERTENSION [None]
  - LYMPHADENOPATHY [None]
  - MYOPATHY [None]
  - PHARYNGITIS [None]
  - RASH [None]
  - RENAL IMPAIRMENT [None]
  - TRANSPLANT REJECTION [None]
